FAERS Safety Report 9083957 (Version 2)
Quarter: 2013Q1

REPORT INFORMATION
  Report Type: Report from Study
  Country: FR (occurrence: FR)
  Receive Date: 20130130
  Receipt Date: 20130222
  Transmission Date: 20140127
  Serious: Yes (Hospitalization)
  Sender: FDA-Public Use
  Company Number: FR-BAXTER-2013BAX003475

PATIENT
  Age: 11 None
  Sex: Female
  Weight: 64.4 kg

DRUGS (20)
  1. HOLOXAN 2000 MG, POUDRE POUR USAGE PARENT?RAL [Suspect]
     Indication: NEOPLASM MALIGNANT
     Route: 042
     Dates: start: 20120330
  2. HOLOXAN 2000 MG, POUDRE POUR USAGE PARENT?RAL [Suspect]
     Route: 042
     Dates: start: 20121030
  3. HOLOXAN 2000 MG, POUDRE POUR USAGE PARENT?RAL [Suspect]
     Route: 042
     Dates: start: 20121121
  4. HOLOXAN 2000 MG, POUDRE POUR USAGE PARENT?RAL [Suspect]
     Route: 042
     Dates: start: 20121204
  5. HOLOXAN 2000 MG, POUDRE POUR USAGE PARENT?RAL [Suspect]
     Route: 042
     Dates: start: 20130103
  6. VINCRISTINE [Suspect]
     Indication: NEOPLASM MALIGNANT
     Route: 042
     Dates: start: 20120330
  7. VINCRISTINE [Suspect]
     Route: 042
     Dates: start: 20121030
  8. VINCRISTINE [Suspect]
     Route: 042
     Dates: start: 20121204
  9. VINCRISTINE [Suspect]
     Route: 042
     Dates: start: 20130102
  10. DACTINOMYCIN [Suspect]
     Indication: NEOPLASM MALIGNANT
     Route: 042
     Dates: start: 20120330
  11. DACTINOMYCIN [Suspect]
     Route: 042
     Dates: start: 20121030
  12. DACTINOMYCIN [Suspect]
     Route: 042
     Dates: start: 20121120
  13. DACTINOMYCIN [Suspect]
     Route: 042
     Dates: start: 20121204
  14. DACTINOMYCIN [Suspect]
     Route: 042
     Dates: start: 20130102
  15. BEVACIZUMAB [Suspect]
     Indication: NEOPLASM MALIGNANT
     Route: 042
     Dates: start: 20121030
  16. BEVACIZUMAB [Suspect]
     Route: 042
     Dates: start: 20121120
  17. BEVACIZUMAB [Suspect]
     Route: 042
     Dates: start: 20130102
  18. DOXORUBICIN [Suspect]
     Indication: NEOPLASM MALIGNANT
     Route: 042
     Dates: start: 20121030
  19. DOXORUBICIN [Suspect]
     Route: 042
     Dates: start: 20121121
  20. DOXORUBICIN [Suspect]
     Route: 042
     Dates: start: 20130103

REACTIONS (2)
  - Febrile bone marrow aplasia [Recovered/Resolved]
  - Febrile bone marrow aplasia [Recovered/Resolved]
